FAERS Safety Report 24546572 (Version 1)
Quarter: 2024Q4

REPORT INFORMATION
  Report Type: Spontaneous
  Country: US (occurrence: US)
  Receive Date: 20241024
  Receipt Date: 20241024
  Transmission Date: 20250115
  Serious: Yes (Hospitalization, Other)
  Sender: SANOFI AVENTIS
  Company Number: US-SA-2024SA305780

PATIENT
  Age: 28 Year
  Sex: Male

DRUGS (2)
  1. DUPIXENT [Suspect]
     Active Substance: DUPILUMAB
     Indication: Eosinophilic oesophagitis
     Dosage: 300 MG, QW
     Route: 058
     Dates: start: 202408, end: 2024
  2. DUPIXENT [Suspect]
     Active Substance: DUPILUMAB
     Dosage: 300 MG, QW
     Route: 058
     Dates: start: 20241018

REACTIONS (7)
  - Diabetic ketoacidosis [Unknown]
  - Upper respiratory tract infection [Unknown]
  - Condition aggravated [Unknown]
  - Cough [Unknown]
  - Sputum discoloured [Unknown]
  - Wheezing [Unknown]
  - Oesophageal prosthesis insertion [Unknown]

NARRATIVE: CASE EVENT DATE: 20240901
